FAERS Safety Report 17733308 (Version 1)
Quarter: 2020Q2

REPORT INFORMATION
  Report Type: Spontaneous
  Country: US (occurrence: US)
  Receive Date: 20200501
  Receipt Date: 20200501
  Transmission Date: 20200714
  Serious: No
  Sender: FDA-Public Use
  Company Number: US-ASTRAZENECA-2020SE55266

PATIENT
  Sex: Female

DRUGS (2)
  1. SYMBICORT [Suspect]
     Active Substance: BUDESONIDE\FORMOTEROL FUMARATE DIHYDRATE
     Dosage: 160 OF 4.5 TWO INHALATIONS TWICE A DAY
     Route: 055
     Dates: start: 20200311
  2. ALBUTEROL INHALER [Concomitant]
     Active Substance: ALBUTEROL
     Dosage: UNKNOWN
     Route: 055

REACTIONS (2)
  - Product dose omission [Not Recovered/Not Resolved]
  - Dyspnoea [Unknown]
